FAERS Safety Report 17204295 (Version 2)
Quarter: 2019Q4

REPORT INFORMATION
  Report Type: Spontaneous
  Country: JP (occurrence: JP)
  Receive Date: 20191226
  Receipt Date: 20191231
  Transmission Date: 20200122
  Serious: Yes (Other)
  Sender: FDA-Public Use
  Company Number: JP-PFIZER INC-2019534187

PATIENT
  Age: 21 Day
  Sex: Female

DRUGS (1)
  1. FOSTOIN [Suspect]
     Active Substance: FOSPHENYTOIN SODIUM
     Dosage: 150 MG, 1X/DAY
     Route: 042
     Dates: start: 20191127, end: 20191128

REACTIONS (5)
  - Bradycardia neonatal [Recovered/Resolved]
  - Overdose [Unknown]
  - Product administered to patient of inappropriate age [Unknown]
  - Anticonvulsant drug level increased [Unknown]
  - Blood pressure decreased [Recovered/Resolved]

NARRATIVE: CASE EVENT DATE: 20191127
